FAERS Safety Report 5179087-7 (Version None)
Quarter: 2006Q4

REPORT INFORMATION
  Report Type: 
  Country: None (occurrence: None)
  Receive Date: 20061219
  Receipt Date: 20061207
  Transmission Date: 20070319
  Serious: Yes (Hospitalization)
  Sender: FDA-Public Use
  Company Number: US-AMGEN-US202793

PATIENT
  Sex: Female

DRUGS (1)
  1. ENBREL [Suspect]
     Indication: RHEUMATOID ARTHRITIS
     Route: 058
     Dates: start: 20040701

REACTIONS (4)
  - CHEST PAIN [None]
  - CYSTITIS [None]
  - ELECTROCARDIOGRAM ABNORMAL [None]
  - MYALGIA [None]
